FAERS Safety Report 6662334-X (Version None)
Quarter: 2010Q1

REPORT INFORMATION
  Report Type: 
  Country: None (occurrence: None)
  Receive Date: 20100331
  Receipt Date: 20100322
  Transmission Date: 20100710
  Serious: No
  Sender: FDA-Public Use
  Company Number: US-ABBOTT-10P-163-0634336-00

PATIENT
  Sex: Female
  Weight: 65.83 kg

DRUGS (1)
  1. LUPRON DEPOT [Suspect]
     Indication: UTERINE ENLARGEMENT
     Dates: start: 20100309

REACTIONS (3)
  - HEADACHE [None]
  - MENORRHAGIA [None]
  - PAIN [None]
